FAERS Safety Report 21469530 (Version 2)
Quarter: 2022Q4

REPORT INFORMATION
  Report Type: Spontaneous
  Country: US (occurrence: US)
  Receive Date: 20221018
  Receipt Date: 20221108
  Transmission Date: 20230113
  Serious: No
  Sender: FDA-Public Use
  Company Number: US-SANOFI-01318848

PATIENT
  Age: 51 Year
  Sex: Female

DRUGS (2)
  1. DUPIXENT [Suspect]
     Active Substance: DUPILUMAB
     Indication: Eczema
     Dosage: 300 MG, QOW
     Dates: start: 202101
  2. DUPIXENT [Suspect]
     Active Substance: DUPILUMAB
     Indication: Dermatitis atopic

REACTIONS (2)
  - Urticaria chronic [Unknown]
  - Product use issue [Unknown]
